FAERS Safety Report 24394168 (Version 2)
Quarter: 2024Q4

REPORT INFORMATION
  Report Type: Spontaneous
  Country: JP (occurrence: JP)
  Receive Date: 20241003
  Receipt Date: 20241125
  Transmission Date: 20250114
  Serious: Yes (Death, Life-Threatening, Hospitalization, Other)
  Sender: ASTELLAS
  Company Number: JP-ASTELLAS-2024-AER-009648

PATIENT
  Age: 88 Year
  Sex: Female

DRUGS (24)
  1. TACROLIMUS [Suspect]
     Active Substance: TACROLIMUS
     Indication: Rheumatoid arthritis
     Route: 048
  2. TACROLIMUS [Suspect]
     Active Substance: TACROLIMUS
     Indication: Nephrotic syndrome
     Route: 048
  3. PREDNISOLONE [Suspect]
     Active Substance: PREDNISOLONE
     Indication: Nephrotic syndrome
     Dosage: 0.8MG/KG
     Route: 048
     Dates: start: 202101, end: 2021
  4. PREDNISOLONE [Suspect]
     Active Substance: PREDNISOLONE
     Route: 048
  5. PREDNISOLONE [Suspect]
     Active Substance: PREDNISOLONE
     Route: 048
  6. METHYLPREDNISOLONE [Suspect]
     Active Substance: METHYLPREDNISOLONE
     Indication: Nephrotic syndrome
     Route: 048
  7. METHYLPREDNISOLONE [Suspect]
     Active Substance: METHYLPREDNISOLONE
     Route: 048
  8. METHYLPREDNISOLONE [Suspect]
     Active Substance: METHYLPREDNISOLONE
     Route: 048
  9. METHYLPREDNISOLONE [Suspect]
     Active Substance: METHYLPREDNISOLONE
     Route: 048
  10. METHYLPREDNISOLONE [Suspect]
     Active Substance: METHYLPREDNISOLONE
     Route: 048
  11. MEROPENEM [Concomitant]
     Active Substance: MEROPENEM
     Indication: Pulmonary nocardiosis
     Route: 065
  12. MEROPENEM [Concomitant]
     Active Substance: MEROPENEM
     Indication: Cerebral nocardiosis
     Route: 065
  13. MEROPENEM [Concomitant]
     Active Substance: MEROPENEM
     Indication: Septic shock
     Route: 065
  14. MEROPENEM [Concomitant]
     Active Substance: MEROPENEM
     Indication: Multiple organ dysfunction syndrome
  15. LEVOFLOXACIN [Concomitant]
     Active Substance: LEVOFLOXACIN
     Indication: Pulmonary nocardiosis
     Route: 065
  16. LEVOFLOXACIN [Concomitant]
     Active Substance: LEVOFLOXACIN
     Indication: Cerebral nocardiosis
     Route: 065
  17. LEVOFLOXACIN [Concomitant]
     Active Substance: LEVOFLOXACIN
     Indication: Septic shock
  18. LEVOFLOXACIN [Concomitant]
     Active Substance: LEVOFLOXACIN
     Indication: Multiple organ dysfunction syndrome
  19. AMOXICILLIN [Concomitant]
     Active Substance: AMOXICILLIN
     Indication: Drug therapy
     Route: 048
  20. CLAVULANIC [Concomitant]
     Indication: Drug therapy
     Route: 048
  21. SULFAMETHOXAZOLE AND TRIMETHOPRIM [Concomitant]
     Active Substance: SULFAMETHOXAZOLE\TRIMETHOPRIM
     Indication: Drug therapy
     Route: 048
  22. SULFAMETHOXAZOLE AND TRIMETHOPRIM [Concomitant]
     Active Substance: SULFAMETHOXAZOLE\TRIMETHOPRIM
     Route: 048
  23. LINEZOLID [Concomitant]
     Active Substance: LINEZOLID
     Indication: Cerebral nocardiosis
     Route: 065
  24. TEDIZOLID [Concomitant]
     Active Substance: TEDIZOLID
     Indication: Cerebral nocardiosis
     Route: 065

REACTIONS (6)
  - Nocardiosis [Fatal]
  - Aspergillus infection [Fatal]
  - Septic shock [Fatal]
  - Multiple organ dysfunction syndrome [Fatal]
  - Hepatic enzyme increased [Unknown]
  - Off label use [Unknown]
